FAERS Safety Report 8022374-5 (Version None)
Quarter: 2011Q4

REPORT INFORMATION
  Report Type: 
  Country: None (occurrence: None)
  Receive Date: 20111123
  Receipt Date: 20110908
  Transmission Date: 20120403
  Serious: No
  Sender: FDA-Public Use
  Company Number: 335285

PATIENT
  Age: 61 Year
  Sex: Male

DRUGS (3)
  1. VICTOZA [Suspect]
     Indication: TYPE 2 DIABETES MELLITUS
     Dosage: 0.6;1.2 MG, QD, SUBCUTANEOUS
     Route: 058
     Dates: start: 20110906
  2. VICTOZA [Suspect]
     Indication: TYPE 2 DIABETES MELLITUS
     Dosage: 0.6;1.2 MG, QD, SUBCUTANEOUS
     Route: 058
     Dates: start: 20110902
  3. GLIMEPIRIDE [Concomitant]

REACTIONS (2)
  - NAUSEA [None]
  - HOT FLUSH [None]
